FAERS Safety Report 10074518 (Version 1)
Quarter: 2014Q2

REPORT INFORMATION
  Report Type: Spontaneous
  Country: US (occurrence: US)
  Receive Date: 20140411
  Receipt Date: 20140411
  Transmission Date: 20141212
  Serious: No
  Sender: FDA-Public Use
  Company Number: US-SA-2013SA120445

PATIENT
  Age: 93 Year
  Sex: Female

DRUGS (3)
  1. ALLEGRA D [Suspect]
     Indication: NASAL CONGESTION
     Route: 048
  2. MUCINEX [Concomitant]
     Route: 065
  3. ANTIHYPERTENSIVES [Concomitant]

REACTIONS (7)
  - Hypoaesthesia [Not Recovered/Not Resolved]
  - Swelling [Not Recovered/Not Resolved]
  - Abdominal pain upper [Not Recovered/Not Resolved]
  - Dry mouth [Not Recovered/Not Resolved]
  - Breath odour [Not Recovered/Not Resolved]
  - Pruritus [Recovered/Resolved]
  - Drug ineffective [Unknown]
